FAERS Safety Report 19003866 (Version 2)
Quarter: 2023Q2

REPORT INFORMATION
  Report Type: Report from Study
  Country: US (occurrence: US)
  Receive Date: 20210313
  Receipt Date: 20230408
  Transmission Date: 20230721
  Serious: No
  Sender: FDA-Public Use
  Company Number: US-NOVARTISTESTPH-NVSC2021US055382

PATIENT
  Sex: Female
  Weight: 58.05 kg

DRUGS (2)
  1. ILARIS [Suspect]
     Active Substance: CANAKINUMAB
     Indication: Cryopyrin associated periodic syndrome
     Dosage: 150 MG
     Route: 058
  2. ILARIS [Suspect]
     Active Substance: CANAKINUMAB
     Dosage: 150 MG, OTHER EVERY 8 WEEKS
     Route: 058
     Dates: start: 20220906

REACTIONS (1)
  - Weight increased [Not Recovered/Not Resolved]
